FAERS Safety Report 20980267 (Version 1)
Quarter: 2022Q2

REPORT INFORMATION
  Report Type: Spontaneous
  Country: ZA (occurrence: ZA)
  Receive Date: 20220620
  Receipt Date: 20220620
  Transmission Date: 20220720
  Serious: Yes (Other)
  Sender: FDA-Public Use
  Company Number: ZA-NOVARTISPH-NVSC2022ZA137661

PATIENT
  Sex: Female

DRUGS (6)
  1. ACLASTA [Suspect]
     Active Substance: ZOLEDRONIC ACID
     Indication: Osteoporosis
     Dosage: UNK UNK, Q12MO
     Route: 041
     Dates: start: 2015
  2. ACLASTA [Suspect]
     Active Substance: ZOLEDRONIC ACID
     Dosage: UNK UNK, Q12MO
     Route: 041
     Dates: start: 2016
  3. ACLASTA [Suspect]
     Active Substance: ZOLEDRONIC ACID
     Dosage: UNK UNK, Q12MO
     Route: 041
     Dates: start: 2017
  4. ACLASTA [Suspect]
     Active Substance: ZOLEDRONIC ACID
     Dosage: UNK UNK, Q12MO
     Route: 041
     Dates: start: 2018
  5. ACLASTA [Suspect]
     Active Substance: ZOLEDRONIC ACID
     Dosage: UNK UNK, Q12MO
     Route: 041
     Dates: start: 2019
  6. ACLASTA [Suspect]
     Active Substance: ZOLEDRONIC ACID
     Dosage: UNK UNK, Q12MO
     Route: 041
     Dates: start: 2021

REACTIONS (1)
  - Bone density decreased [Not Recovered/Not Resolved]
